FAERS Safety Report 13421848 (Version 1)
Quarter: 2017Q2

REPORT INFORMATION
  Report Type: Spontaneous
  Country: US (occurrence: US)
  Receive Date: 20170410
  Receipt Date: 20170410
  Transmission Date: 20170830
  Serious: No
  Sender: FDA-Public Use
  Company Number: US-BIOGEN-2015BI017269

PATIENT
  Age: 32 Year
  Sex: Male

DRUGS (2)
  1. TECFIDERA [Suspect]
     Active Substance: DIMETHYL FUMARATE
     Route: 048
     Dates: start: 20131001, end: 20131201
  2. TECFIDERA [Suspect]
     Active Substance: DIMETHYL FUMARATE
     Indication: MULTIPLE SCLEROSIS
     Route: 048
     Dates: start: 201309, end: 201312

REACTIONS (10)
  - Drug ineffective [Recovered/Resolved]
  - Fatigue [Unknown]
  - Balance disorder [Unknown]
  - Memory impairment [Unknown]
  - Dizziness [Recovered/Resolved]
  - Ankle fracture [Recovered/Resolved]
  - Central nervous system lesion [Not Recovered/Not Resolved]
  - Fall [Recovered/Resolved]
  - Anger [Unknown]
  - Frustration tolerance decreased [Unknown]

NARRATIVE: CASE EVENT DATE: 201309
